FAERS Safety Report 6932512-0 (Version None)
Quarter: 2010Q3

REPORT INFORMATION
  Report Type: 
  Country: None (occurrence: None)
  Receive Date: 20100817
  Receipt Date: 20100805
  Transmission Date: 20110219
  Serious: Yes (Disabling)
  Sender: FDA-Public Use
  Company Number: 2010US003140

PATIENT
  Age: 77 Year
  Sex: Male

DRUGS (8)
  1. VESICARE [Suspect]
     Indication: HYPERTONIC BLADDER
     Dosage: 10 MG, ORAL
     Route: 048
  2. VESICARE [Suspect]
     Indication: INCONTINENCE
     Dosage: 10 MG, ORAL
     Route: 048
  3. VESICARE [Suspect]
     Indication: MICTURITION URGENCY
     Dosage: 10 MG, ORAL
     Route: 048
  4. TOPROL-XL [Concomitant]
  5. LEXAPRO [Concomitant]
  6. COUMADIN [Concomitant]
  7. ASPIRIN [Concomitant]
  8. VITAMINS NOS (VITAMINS NOS) [Concomitant]

REACTIONS (1)
  - AMNESIA [None]
